FAERS Safety Report 4995137-2 (Version None)
Quarter: 2006Q2

REPORT INFORMATION
  Report Type: 
  Country: None (occurrence: None)
  Receive Date: 20060508
  Receipt Date: 20050112
  Transmission Date: 20061013
  Serious: Yes (Life-Threatening, Hospitalization, Other)
  Sender: FDA-Public Use
  Company Number: US-MERCK-0501USA01916

PATIENT
  Age: 37 Year
  Sex: Female
  Weight: 100 kg

DRUGS (2)
  1. VIOXX [Suspect]
     Indication: BACK PAIN
     Route: 048
     Dates: start: 20010101, end: 20020501
  2. TYLENOL (CAPLET) [Concomitant]
     Route: 048

REACTIONS (26)
  - ABDOMINAL PAIN UPPER [None]
  - ADNEXA UTERI MASS [None]
  - ANAEMIA [None]
  - ANGINA UNSTABLE [None]
  - ASTHMA [None]
  - BIPOLAR DISORDER [None]
  - CHEST PAIN [None]
  - DIZZINESS [None]
  - DRUG TOXICITY [None]
  - EXCORIATION [None]
  - FALL [None]
  - FEELING ABNORMAL [None]
  - GASTROOESOPHAGEAL REFLUX DISEASE [None]
  - HAEMATURIA [None]
  - HIATUS HERNIA [None]
  - HYPERLIPIDAEMIA [None]
  - HYPERTENSION [None]
  - HYPOCALCAEMIA [None]
  - HYPOTENSION [None]
  - JOINT INJURY [None]
  - MIGRAINE [None]
  - OEDEMA PERIPHERAL [None]
  - POISONING [None]
  - PULMONARY EMBOLISM [None]
  - ROAD TRAFFIC ACCIDENT [None]
  - SYNCOPE [None]
